FAERS Safety Report 9432323 (Version 1)
Quarter: 2013Q3

REPORT INFORMATION
  Report Type: Spontaneous
  Country: US (occurrence: None)
  Receive Date: 20130730
  Receipt Date: 20130730
  Transmission Date: 20140515
  Serious: No
  Sender: FDA-Public Use
  Company Number: None

PATIENT
  Age: 13 Year
  Sex: Male
  Weight: 54.5 kg

DRUGS (1)
  1. METHYLPHENIDATE ER [Suspect]
     Route: 048

REACTIONS (1)
  - Ill-defined disorder [None]
